FAERS Safety Report 5658979-6 (Version None)
Quarter: 2008Q1

REPORT INFORMATION
  Report Type: 
  Country: None (occurrence: None)
  Receive Date: 20080310
  Receipt Date: 20070517
  Transmission Date: 20080703
  Serious: No
  Sender: FDA-Public Use
  Company Number: US-BAYER-200711590BCC

PATIENT
  Sex: Female
  Weight: 54 kg

DRUGS (7)
  1. ALEVE [Suspect]
     Indication: OSTEOPOROSIS
     Route: 048
     Dates: end: 20070516
  2. ASPIRIN [Suspect]
     Indication: DRUG USE FOR UNKNOWN INDICATION
  3. NEXIUM [Concomitant]
  4. LIPITOR [Concomitant]
  5. LASIX [Concomitant]
  6. MICARDIS [Concomitant]
  7. TOPROL [Concomitant]

REACTIONS (1)
  - CONTUSION [None]
